FAERS Safety Report 24333662 (Version 1)
Quarter: 2024Q3

REPORT INFORMATION
  Report Type: Spontaneous
  Country: US (occurrence: None)
  Receive Date: 20240918
  Receipt Date: 20240918
  Transmission Date: 20241017
  Serious: No
  Sender: Public
  Company Number: None

PATIENT
  Age: 56 Year
  Sex: Female
  Weight: 69.75 kg

DRUGS (5)
  1. LUMASON [Suspect]
     Active Substance: SULFUR HEXAFLUORIDE
  2. ACYCLOVIR [Concomitant]
     Active Substance: ACYCLOVIR
  3. POMALYST [Concomitant]
     Active Substance: POMALIDOMIDE
  4. DARZALEX [Concomitant]
     Active Substance: DARATUMUMAB
  5. Faspro [Concomitant]

REACTIONS (2)
  - Nausea [None]
  - Headache [None]

NARRATIVE: CASE EVENT DATE: 20240917
